FAERS Safety Report 17524412 (Version 1)
Quarter: 2020Q1

REPORT INFORMATION
  Report Type: Spontaneous
  Country: US (occurrence: US)
  Receive Date: 20200311
  Receipt Date: 20200311
  Transmission Date: 20200409
  Serious: Yes (Other)
  Sender: FDA-Public Use
  Company Number: US-SUN PHARMACEUTICAL INDUSTRIES LTD-2020R1-239871

PATIENT
  Age: 60 Year
  Sex: Female

DRUGS (1)
  1. LITHIUM. [Suspect]
     Active Substance: LITHIUM
     Indication: BIPOLAR DISORDER
     Dosage: 300 MILLIGRAM, BID
     Route: 065

REACTIONS (6)
  - Bundle branch block right [Unknown]
  - Toxicity to various agents [Unknown]
  - Bundle branch block left [Unknown]
  - Sinus bradycardia [Unknown]
  - Abnormal behaviour [Unknown]
  - Atrioventricular block [Recovered/Resolved]
